FAERS Safety Report 5329884-X (Version None)
Quarter: 2007Q2

REPORT INFORMATION
  Report Type: 
  Country: None (occurrence: None)
  Receive Date: 20070521
  Receipt Date: 20070511
  Transmission Date: 20071010
  Serious: Yes (Other)
  Sender: FDA-Public Use
  Company Number: JP-AVENTIS-200711182JP

PATIENT
  Age: 76 Year
  Sex: Male

DRUGS (2)
  1. LASIX [Suspect]
     Indication: HYPERTENSION
     Dates: start: 20030801, end: 20070509
  2. UNKNOWN DRUG [Concomitant]

REACTIONS (1)
  - INTERSTITIAL LUNG DISEASE [None]
